FAERS Safety Report 9305926 (Version 1)
Quarter: 2013Q2

REPORT INFORMATION
  Report Type: Spontaneous
  Country: US (occurrence: US)
  Receive Date: 20130523
  Receipt Date: 20130523
  Transmission Date: 20140414
  Serious: No
  Sender: FDA-Public Use
  Company Number: US-PFIZER INC-2013157691

PATIENT
  Age: 44 Year
  Sex: Female
  Weight: 58.96 kg

DRUGS (1)
  1. LYRICA [Suspect]
     Indication: FIBROMYALGIA
     Dosage: 100 MG, 3X/DAY
     Route: 048
     Dates: start: 2009

REACTIONS (6)
  - Dizziness [Recovered/Resolved]
  - Cyst [Unknown]
  - Weight increased [Unknown]
  - Local swelling [Unknown]
  - Spider vein [Unknown]
  - Varicose vein [Unknown]
